FAERS Safety Report 5874918-7 (Version None)
Quarter: 2008Q3

REPORT INFORMATION
  Report Type: 
  Country: None (occurrence: None)
  Receive Date: 20080904
  Receipt Date: 20080827
  Transmission Date: 20090109
  Serious: Yes (Life-Threatening, Other)
  Sender: FDA-Public Use
  Company Number: GXKR2008GB08192

PATIENT
  Age: 68 Year
  Sex: Female

DRUGS (7)
  1. FUROSEMIDE [Suspect]
     Dosage: 20 MG, UNKNOWN; 40 MG, UNKNOWN
     Dates: start: 20071120
  2. RAMIPRIL [Suspect]
     Indication: LEFT VENTRICULAR HYPERTROPHY
     Dosage: 10 MG, QD, ORAL; 2.5 MG, QD, ORAL; 5 MG
     Route: 048
     Dates: start: 20070918, end: 20080115
  3. DIHYDROCODEINE COMPOUND [Concomitant]
  4. IBUPROFEN [Concomitant]
  5. LEVOTHYROXINE SODIUM [Concomitant]
  6. OMEPRAZOLE [Concomitant]
  7. TIBOLONE (TIBOLONE) [Concomitant]

REACTIONS (8)
  - ASTHMA [None]
  - CHRONIC OBSTRUCTIVE PULMONARY DISEASE [None]
  - FEELING ABNORMAL [None]
  - HYPOTENSION [None]
  - LOSS OF CONSCIOUSNESS [None]
  - MALAISE [None]
  - PERICARDIAL EFFUSION [None]
  - RENAL IMPAIRMENT [None]
